FAERS Safety Report 5025178-0 (Version None)
Quarter: 2006Q2

REPORT INFORMATION
  Report Type: 
  Country: None (occurrence: None)
  Receive Date: 20060613
  Receipt Date: 20060607
  Transmission Date: 20061013
  Serious: Yes (Other)
  Sender: FDA-Public Use
  Company Number: US-GLAXOSMITHKLINE-A0608555A

PATIENT
  Age: 15 Year
  Sex: Male
  Weight: 102.3 kg

DRUGS (1)
  1. LAMICTAL [Suspect]
     Indication: DRUG ABUSER
     Route: 065

REACTIONS (2)
  - DRUG ABUSER [None]
  - RASH [None]
